FAERS Safety Report 20776394 (Version 1)
Quarter: 2022Q2

REPORT INFORMATION
  Report Type: Spontaneous
  Country: US (occurrence: None)
  Receive Date: 20220502
  Receipt Date: 20220502
  Transmission Date: 20220720
  Serious: Yes (Disabling, Other)
  Sender: FDA-Public Use
  Company Number: None

PATIENT
  Age: 64 Year
  Sex: Female
  Weight: 68.95 kg

DRUGS (2)
  1. AROMASIN [Suspect]
     Active Substance: EXEMESTANE
     Indication: Recurrent cancer
     Route: 048
     Dates: start: 2020, end: 20211120
  2. TAMOXIFEN [Suspect]
     Active Substance: TAMOXIFEN

REACTIONS (13)
  - Haemoglobin increased [None]
  - Haematocrit increased [None]
  - Nausea [None]
  - Vomiting [None]
  - Hot flush [None]
  - Chills [None]
  - Malaise [None]
  - Insomnia [None]
  - Blood pressure increased [None]
  - Vertigo [None]
  - Migraine [None]
  - Hyperhidrosis [None]
  - Drug intolerance [None]

NARRATIVE: CASE EVENT DATE: 20200404
